FAERS Safety Report 24189211 (Version 1)
Quarter: 2024Q3

REPORT INFORMATION
  Report Type: Spontaneous
  Country: US (occurrence: US)
  Receive Date: 20240808
  Receipt Date: 20240808
  Transmission Date: 20241016
  Serious: No
  Sender: Haleon PLC
  Company Number: US-HALEON-2190942

PATIENT
  Age: 60 Year
  Sex: Male

DRUGS (1)
  1. ABREVA [Suspect]
     Active Substance: DOCOSANOL
     Indication: Oral herpes

REACTIONS (3)
  - Oral herpes [Unknown]
  - Condition aggravated [Unknown]
  - Drug ineffective [Unknown]
